FAERS Safety Report 5761240-2 (Version None)
Quarter: 2008Q2

REPORT INFORMATION
  Report Type: 
  Country: None (occurrence: None)
  Receive Date: 20080606
  Receipt Date: 20080603
  Transmission Date: 20081010
  Serious: Yes (Death)
  Sender: FDA-Public Use
  Company Number: JP-ASTRAZENECA-2008AP01269

PATIENT
  Age: 27720 Day
  Sex: Male
  Weight: 66 kg

DRUGS (2)
  1. XYLOCAINE [Suspect]
     Indication: NERVE BLOCK
     Route: 053
     Dates: start: 20071102
  2. ISOTONIC SODIUM CHLORIDE SOLUTION [Concomitant]
     Indication: LOCAL ANAESTHESIA
     Route: 061
     Dates: start: 20071102

REACTIONS (2)
  - SHOCK [None]
  - VENTRICULAR ARRHYTHMIA [None]
